FAERS Safety Report 8131631-3 (Version None)
Quarter: 2012Q1

REPORT INFORMATION
  Report Type: 
  Country: None (occurrence: None)
  Receive Date: 20120208
  Receipt Date: 20120125
  Transmission Date: 20120608
  Serious: Yes (Other)
  Sender: FDA-Public Use
  Company Number: 2012MA001163

PATIENT
  Sex: Female
  Weight: 70.3075 kg

DRUGS (15)
  1. ATENOLOL [Concomitant]
  2. HYDROCHLOROTHIAZIDE [Concomitant]
  3. INFLUENZA VACCINE [Concomitant]
  4. TOPROL-XL [Concomitant]
  5. DOXYCYCLINE [Concomitant]
  6. MAGNESIUM OXIDE [Concomitant]
  7. DIGOXIN [Suspect]
     Indication: PRODUCT USED FOR UNKNOWN INDICATION
     Dosage: 0.125 MG;QD;PO
     Route: 048
     Dates: start: 20000309, end: 20030207
  8. AUGMENTIN '125' [Concomitant]
  9. PEPCID [Concomitant]
  10. LISINOPRIL [Concomitant]
  11. LYRICA [Concomitant]
  12. PRILOSEC [Concomitant]
  13. LIPITOR [Concomitant]
  14. ATARAX [Concomitant]
  15. LEVOTHYROXINE SODIUM [Concomitant]

REACTIONS (28)
  - DEEP VEIN THROMBOSIS [None]
  - CYSTITIS [None]
  - LIPIDS ABNORMAL [None]
  - SUPRAVENTRICULAR EXTRASYSTOLES [None]
  - PARAESTHESIA [None]
  - MICTURITION URGENCY [None]
  - REFUSAL OF TREATMENT BY PATIENT [None]
  - HYPERTENSION [None]
  - NEUROPATHY PERIPHERAL [None]
  - URINARY TRACT INFECTION [None]
  - ARTHRALGIA [None]
  - TARSAL TUNNEL SYNDROME [None]
  - PALPITATIONS [None]
  - HYPOAESTHESIA [None]
  - PAIN IN EXTREMITY [None]
  - POLLAKIURIA [None]
  - FOOT DEFORMITY [None]
  - OROPHARYNGEAL PAIN [None]
  - BACK PAIN [None]
  - DYSURIA [None]
  - GASTROOESOPHAGEAL REFLUX DISEASE [None]
  - MUSCULOSKELETAL PAIN [None]
  - BURNING SENSATION [None]
  - ABDOMINAL DISTENSION [None]
  - LIPOMA [None]
  - HYPOTHYROIDISM [None]
  - HYPERLIPIDAEMIA [None]
  - ABDOMINAL PAIN [None]
